FAERS Safety Report 25980405 (Version 1)
Quarter: 2025Q4

REPORT INFORMATION
  Report Type: Spontaneous
  Country: MX (occurrence: MX)
  Receive Date: 20251030
  Receipt Date: 20251030
  Transmission Date: 20260117
  Serious: Yes (Hospitalization, Other)
  Sender: NOVO NORDISK
  Company Number: MX-NOVOPROD-1546200

PATIENT
  Age: 9 Year
  Sex: Male
  Weight: 32.5 kg

DRUGS (2)
  1. NOVOEIGHT [Suspect]
     Active Substance: ANTIHEMOPHILIC FACTOR, HUMAN RECOMBINANT
     Dosage: 1000 IU, QOD
     Route: 042
  2. NOVOEIGHT [Suspect]
     Active Substance: ANTIHEMOPHILIC FACTOR, HUMAN RECOMBINANT
     Indication: Factor VIII deficiency
     Dosage: 1000 IU, TIW
     Route: 042

REACTIONS (3)
  - Influenza [Recovered/Resolved with Sequelae]
  - Encephalitis [Recovered/Resolved with Sequelae]
  - Hypertension [Unknown]

NARRATIVE: CASE EVENT DATE: 20250930
